FAERS Safety Report 9590423 (Version 2)
Quarter: 2013Q4

REPORT INFORMATION
  Report Type: Spontaneous
  Country: US (occurrence: US)
  Receive Date: 20131003
  Receipt Date: 20131003
  Transmission Date: 20140711
  Serious: No
  Sender: FDA-Public Use
  Company Number: US-AMGEN-USASP2012068846

PATIENT
  Age: 55 Year
  Sex: Female
  Weight: 59.86 kg

DRUGS (6)
  1. ENBREL [Suspect]
     Indication: RHEUMATOID ARTHRITIS
     Dosage: 50 MG, QWK
     Route: 058
     Dates: start: 20110401, end: 20120821
  2. PREDNISONE [Concomitant]
     Dosage: 5 UNK, QD
     Route: 048
  3. IBUPROFEN [Concomitant]
     Dosage: 400 UNK, PRN
     Route: 048
  4. VIACTIV                            /00751501/ [Concomitant]
     Dosage: 4 UNK, QD
     Route: 048
  5. NEURONTIN [Concomitant]
     Dosage: 300 UNK, TID
     Route: 048
  6. OMEPRAZOLE [Concomitant]
     Dosage: 20 UNK, QD
     Route: 048

REACTIONS (3)
  - Joint stiffness [Not Recovered/Not Resolved]
  - Arthralgia [Not Recovered/Not Resolved]
  - Upper respiratory tract infection [Recovered/Resolved]
